FAERS Safety Report 16885323 (Version 1)
Quarter: 2019Q4

REPORT INFORMATION
  Report Type: Spontaneous
  Country: DE (occurrence: DE)
  Receive Date: 20191004
  Receipt Date: 20191004
  Transmission Date: 20200122
  Serious: Yes (Other)
  Sender: FDA-Public Use
  Company Number: DE-DRREDDYS-GER/GER/19/0114642

PATIENT
  Age: 2 Year
  Sex: Male
  Weight: 14.5 kg

DRUGS (5)
  1. LERCANIDIPIN 10 [Suspect]
     Active Substance: LERCANIDIPINE
     Indication: PRODUCT USED FOR UNKNOWN INDICATION
     Dosage: 1-2 TABLET/S (UNCLEAR), ORALLY, EXPOSURE UNCLEAR
     Route: 048
     Dates: start: 20190926, end: 20190926
  2. VENLAFAXIN BETA 37,5 MG TABLETTEN [Suspect]
     Active Substance: VENLAFAXINE HYDROCHLORIDE
     Indication: PRODUCT USED FOR UNKNOWN INDICATION
     Dosage: 1-2 TABLET/S (QUANTITY AND MANUFACTURER UNCLEAR), ORAL, EXPOSITION UNCLEAR
     Route: 048
     Dates: start: 20190926, end: 20190926
  3. RAMILICH 10MG TABLETTEN [Suspect]
     Active Substance: RAMIPRIL
     Indication: PRODUCT USED FOR UNKNOWN INDICATION
     Dosage: 1-2 TABLET/S(UNCLEAR), ORALLY, EXPOSURE UNCLEAR
     Route: 048
     Dates: start: 20190926, end: 20190926
  4. VIGIL (MODAFINIL) [Suspect]
     Active Substance: MODAFINIL
     Indication: PRODUCT USED FOR UNKNOWN INDICATION
     Dosage: 1-2 TABLET/S (UNCLEAR), ORALLY, EXPOSURE UNCLEAR
     Route: 048
     Dates: start: 20190926, end: 20190926
  5. OMEPRAZOL 20 [Suspect]
     Active Substance: OMEPRAZOLE
     Indication: PRODUCT USED FOR UNKNOWN INDICATION
     Dosage: 1-2 TABLET/S (UNCLEAR), ORALLY, EXPOSURE UNCLEAR
     Route: 048
     Dates: start: 20190926, end: 20190926

REACTIONS (2)
  - Accidental exposure to product by child [Unknown]
  - No adverse event [Unknown]

NARRATIVE: CASE EVENT DATE: 20190926
